FAERS Safety Report 8809194 (Version 1)
Quarter: 2012Q4

REPORT INFORMATION
  Report Type: Spontaneous
  Country: US (occurrence: None)
  Receive Date: 20120920
  Receipt Date: 20120920
  Transmission Date: 20130627
  Serious: Yes (Other)
  Sender: FDA-Public Use
  Company Number: 2012P1056169

PATIENT
  Age: 33 Year
  Sex: Male
  Weight: 65.77 kg

DRUGS (5)
  1. FENTANYL PATCH [Suspect]
     Indication: CHRONIC PAIN
     Dosage: 1 PATCH ; Q72H; TDER
     Route: 062
     Dates: start: 20120901
  2. METHADONE [Suspect]
     Dosage: 2 PILLS ; X1
     Route: 048
     Dates: start: 20120901, end: 20120901
  3. DIAZEM [Concomitant]
  4. DILAUDID [Concomitant]
  5. PREVALIN [Concomitant]

REACTIONS (11)
  - Drug dispensing error [None]
  - Wrong drug administered [None]
  - Vision blurred [None]
  - Feeling abnormal [None]
  - Euphoric mood [None]
  - Drug ineffective [None]
  - Feeling abnormal [None]
  - Product adhesion issue [None]
  - Drug tolerance increased [None]
  - Restless legs syndrome [None]
  - Withdrawal syndrome [None]
